FAERS Safety Report 6665454-9 (Version None)
Quarter: 2010Q2

REPORT INFORMATION
  Report Type: 
  Country: None (occurrence: None)
  Receive Date: 20100402
  Receipt Date: 20100324
  Transmission Date: 20101027
  Serious: Yes (Hospitalization)
  Sender: FDA-Public Use
  Company Number: US-JNJFOC-20100308375

PATIENT
  Sex: Female
  Weight: 8.29 kg

DRUGS (13)
  1. INFLIXIMAB [Suspect]
     Indication: INFLAMMATORY BOWEL DISEASE
     Route: 042
  2. METHOTREXATE [Concomitant]
  3. ANTIBIOTICS [Concomitant]
     Indication: INFLAMMATORY BOWEL DISEASE
  4. FOLATE [Concomitant]
  5. ELIDEL [Concomitant]
  6. CLOTRIMAZOLE [Concomitant]
  7. MICONAZOLE [Concomitant]
  8. MUPIROCIN [Concomitant]
  9. TYLENOL-500 [Concomitant]
  10. IRON [Concomitant]
  11. LEUKINE [Concomitant]
  12. GRANULOCYTE MACROPHAGE COLONY STIM FACTOR [Concomitant]
  13. PREVACID [Concomitant]

REACTIONS (1)
  - PYREXIA [None]
